FAERS Safety Report 17399344 (Version 1)
Quarter: 2020Q1

REPORT INFORMATION
  Report Type: Report from Study
  Country: None (occurrence: US)
  Receive Date: 20200211
  Receipt Date: 20200211
  Transmission Date: 20200409
  Serious: Yes (Other)
  Sender: FDA-Public Use
  Company Number: US-ABBVIE-19K-163-2975646-00

PATIENT
  Age: 72 Year
  Sex: Female
  Weight: 87.17 kg

DRUGS (4)
  1. L METHYLFOLATE [Concomitant]
     Indication: PRODUCT USED FOR UNKNOWN INDICATION
  2. TUMS [Concomitant]
     Active Substance: CALCIUM CARBONATE
     Indication: SUPPLEMENTATION THERAPY
  3. HUMIRA [Suspect]
     Active Substance: ADALIMUMAB
     Indication: ANKYLOSING SPONDYLITIS
     Dosage: CITRATE FREE
     Route: 058
     Dates: start: 201908
  4. VITAMIN D3 [Concomitant]
     Active Substance: CHOLECALCIFEROL
     Indication: VITAMIN SUPPLEMENTATION

REACTIONS (7)
  - Musculoskeletal stiffness [Not Recovered/Not Resolved]
  - Dehydration [Unknown]
  - Cough [Not Recovered/Not Resolved]
  - Renal impairment [Not Recovered/Not Resolved]
  - Night sweats [Not Recovered/Not Resolved]
  - Single functional kidney [Unknown]
  - Pharyngeal disorder [Not Recovered/Not Resolved]

NARRATIVE: CASE EVENT DATE: 201908
